FAERS Safety Report 17265425 (Version 1)
Quarter: 2020Q1

REPORT INFORMATION
  Report Type: Spontaneous
  Country: CA (occurrence: CA)
  Receive Date: 20200114
  Receipt Date: 20200114
  Transmission Date: 20200409
  Serious: Yes (Hospitalization, Other)
  Sender: FDA-Public Use
  Company Number: CA-TAKEDA-2020TUS002020

PATIENT
  Age: 26 Year
  Sex: Male
  Weight: 95 kg

DRUGS (3)
  1. PREVACID [Suspect]
     Active Substance: LANSOPRAZOLE
     Indication: HELICOBACTER INFECTION
     Dosage: UNK
     Route: 065
  2. BIAXIN [Suspect]
     Active Substance: CLARITHROMYCIN
     Indication: HELICOBACTER INFECTION
     Dosage: UNK
     Route: 065
  3. AMOXIL [Suspect]
     Active Substance: AMOXICILLIN
     Indication: HELICOBACTER INFECTION
     Dosage: UNK
     Route: 065

REACTIONS (3)
  - Psychotic disorder [Recovering/Resolving]
  - Unresponsive to stimuli [Recovering/Resolving]
  - Abnormal behaviour [Recovering/Resolving]
